FAERS Safety Report 5962411-2 (Version None)
Quarter: 2008Q4

REPORT INFORMATION
  Report Type: 
  Country: None (occurrence: None)
  Receive Date: 20081121
  Receipt Date: 20081117
  Transmission Date: 20090506
  Serious: Yes (Hospitalization)
  Sender: FDA-Public Use
  Company Number: US-MERCK-0804USA01804

PATIENT
  Age: 74 Year
  Sex: Female

DRUGS (2)
  1. FOSAMAX [Suspect]
     Indication: OSTEOPOROSIS PROPHYLAXIS
     Route: 048
     Dates: start: 20030801, end: 20070801
  2. FOSAMAX [Suspect]
     Route: 048
     Dates: start: 20030701, end: 20030701

REACTIONS (24)
  - ABDOMINAL PAIN [None]
  - ABSCESS JAW [None]
  - DIARRHOEA [None]
  - DRUG INEFFECTIVE [None]
  - DRUG INTOLERANCE [None]
  - EAR PAIN [None]
  - FALL [None]
  - GINGIVAL PAIN [None]
  - GINGIVAL SWELLING [None]
  - HYPOKALAEMIA [None]
  - LEFT VENTRICULAR HYPERTROPHY [None]
  - MALAISE [None]
  - NEURALGIA [None]
  - OSTEOARTHRITIS [None]
  - OSTEOMYELITIS [None]
  - OSTEONECROSIS [None]
  - OSTEOPENIA [None]
  - PARAESTHESIA [None]
  - PHARYNGITIS [None]
  - POOR PERIPHERAL CIRCULATION [None]
  - SPINAL OSTEOARTHRITIS [None]
  - SYNCOPE [None]
  - TEMPOROMANDIBULAR JOINT SYNDROME [None]
  - TOOTH ABSCESS [None]
